FAERS Safety Report 6716523-6 (Version None)
Quarter: 2010Q2

REPORT INFORMATION
  Report Type: 
  Country: None (occurrence: None)
  Receive Date: 20100507
  Receipt Date: 20100426
  Transmission Date: 20101027
  Serious: Yes (Other)
  Sender: FDA-Public Use
  Company Number: US-ELI_LILLY_AND_COMPANY-US201004007734

PATIENT
  Sex: Female

DRUGS (2)
  1. FORTEO [Suspect]
     Indication: OSTEOPOROSIS
     Dosage: 20 UG, DAILY
     Dates: start: 20070101
  2. FORTEO [Suspect]
     Dosage: 20 UG, 3 TO 4 TIMES A WEEK

REACTIONS (2)
  - CONVULSION [None]
  - OFF LABEL USE [None]
